FAERS Safety Report 10190989 (Version 3)
Quarter: 2014Q2

REPORT INFORMATION
  Report Type: Spontaneous
  Country: US (occurrence: US)
  Receive Date: 20140523
  Receipt Date: 20140527
  Transmission Date: 20141212
  Serious: Yes (Other)
  Sender: FDA-Public Use
  Company Number: US-JNJFOC-20140217340

PATIENT
  Sex: Male

DRUGS (2)
  1. RISPERDAL [Suspect]
     Indication: ABNORMAL BEHAVIOUR
     Route: 048
     Dates: start: 2000, end: 2006
  2. RISPERDAL [Suspect]
     Indication: INSOMNIA
     Route: 048
     Dates: start: 2000, end: 2006

REACTIONS (4)
  - Obesity [Not Recovered/Not Resolved]
  - Gynaecomastia [Unknown]
  - Dyslipidaemia [Not Recovered/Not Resolved]
  - Emotional distress [Unknown]
